FAERS Safety Report 6217280-2 (Version None)
Quarter: 2009Q2

REPORT INFORMATION
  Report Type: 
  Country: None (occurrence: None)
  Receive Date: 20090608
  Receipt Date: 20090525
  Transmission Date: 20091009
  Serious: Yes (Death, Hospitalization)
  Sender: FDA-Public Use
  Company Number: GR-PFIZER INC-2009169682

PATIENT
  Age: 72 Year

DRUGS (8)
  1. SUTENT [Suspect]
     Indication: GASTROINTESTINAL STROMAL TUMOUR
     Dosage: 50 MG, 1X/DAY
     Route: 048
     Dates: start: 20081020, end: 20081107
  2. CYCLOPHOSPHAMIDE [Suspect]
     Dosage: UNK MG, UNK
  3. LASIX [Concomitant]
     Dosage: 40 MG, 1X/DAY
     Route: 048
  4. GLUCOPHAGE [Concomitant]
     Dosage: 2550 MG, 1X/DAY
     Route: 048
  5. SALOSPIR [Concomitant]
     Dosage: 325 MG, 1X/DAY
     Route: 048
  6. OMEPRAZOLE [Concomitant]
     Dosage: 20 MG, 1X/DAY
     Route: 048
  7. LIPITOR [Concomitant]
     Dosage: 10 MG, 1X/DAY
     Route: 048
  8. ALLOPURINOL [Concomitant]
     Dosage: 300 MG, 1X/DAY
     Route: 048

REACTIONS (7)
  - ANAEMIA HAEMOLYTIC AUTOIMMUNE [None]
  - ANGINA PECTORIS [None]
  - ASTHENIA [None]
  - DEPRESSED LEVEL OF CONSCIOUSNESS [None]
  - DIARRHOEA [None]
  - DYSPNOEA [None]
  - FEBRILE NEUTROPENIA [None]
